FAERS Safety Report 8992055 (Version 5)
Quarter: 2013Q2

REPORT INFORMATION
  Report Type: Spontaneous
  Country: US (occurrence: US)
  Receive Date: 20121231
  Receipt Date: 20130412
  Transmission Date: 20140414
  Serious: No
  Sender: FDA-Public Use
  Company Number: US-009507513-1212USA005097

PATIENT
  Age: 25 Year
  Sex: Female
  Weight: 99.93 kg

DRUGS (1)
  1. IMPLANON [Suspect]
     Indication: CONTRACEPTION
     Dosage: 1 ROD
     Route: 059
     Dates: start: 20120504, end: 20130306

REACTIONS (3)
  - Implant site pain [Recovered/Resolved]
  - Device breakage [Unknown]
  - Medical device complication [Unknown]
